FAERS Safety Report 14449169 (Version 6)
Quarter: 2019Q3

REPORT INFORMATION
  Report Type: Report from Study
  Country: US (occurrence: US)
  Receive Date: 20180126
  Receipt Date: 20190920
  Transmission Date: 20191004
  Serious: Yes (Other)
  Sender: FDA-Public Use
  Company Number: PHHY2018US008881

PATIENT
  Age: 30 Year
  Sex: Female

DRUGS (1)
  1. GILENYA [Suspect]
     Active Substance: FINGOLIMOD HYDROCHLORIDE
     Indication: MULTIPLE SCLEROSIS
     Dosage: UNK, QD
     Route: 048

REACTIONS (8)
  - Hypertension [Unknown]
  - Paraesthesia [Unknown]
  - Lymphocyte count decreased [Unknown]
  - Depression [Unknown]
  - Anxiety [Unknown]
  - Headache [Unknown]
  - Arthralgia [Unknown]
  - Dysphagia [Unknown]

NARRATIVE: CASE EVENT DATE: 20150929
